FAERS Safety Report 7444466-1 (Version None)
Quarter: 2011Q2

REPORT INFORMATION
  Report Type: 
  Country: None (occurrence: None)
  Receive Date: 20110429
  Receipt Date: 20110418
  Transmission Date: 20111010
  Serious: Yes (Hospitalization)
  Sender: FDA-Public Use
  Company Number: CA-JNJFOC-20110409048

PATIENT
  Sex: Female
  Weight: 52 kg

DRUGS (8)
  1. PREMARIL [Concomitant]
  2. TRAZODONE [Concomitant]
  3. DILAUDID [Concomitant]
  4. ASACOL [Concomitant]
  5. HYDROCHLOROTHIAZIDE [Concomitant]
  6. IMURAN [Concomitant]
  7. REMICADE [Suspect]
     Indication: CROHN'S DISEASE
     Route: 042
  8. ACEBUTOLOL [Concomitant]

REACTIONS (1)
  - WRIST FRACTURE [None]
